FAERS Safety Report 6285700-3 (Version None)
Quarter: 2009Q3

REPORT INFORMATION
  Report Type: 
  Country: None (occurrence: None)
  Receive Date: 20090724
  Receipt Date: 20090715
  Transmission Date: 20100115
  Serious: Yes (Hospitalization)
  Sender: FDA-Public Use
  Company Number: 2008US001794

PATIENT
  Age: 72 Year
  Sex: Female
  Weight: 85.7 kg

DRUGS (4)
  1. AMEVIVE [Suspect]
     Indication: PSORIASIS
     Dosage: INTRAMUSCULAR
     Route: 030
     Dates: start: 20030429
  2. METHOTREXATE [Concomitant]
  3. AVANDIA [Concomitant]
  4. GLYBURIDE [Concomitant]

REACTIONS (10)
  - ANAEMIA [None]
  - BARRETT'S OESOPHAGUS [None]
  - BLOOD POTASSIUM DECREASED [None]
  - CHEST PAIN [None]
  - ECG SIGNS OF MYOCARDIAL ISCHAEMIA [None]
  - FAECES DISCOLOURED [None]
  - GASTROINTESTINAL HAEMORRHAGE [None]
  - HYDRONEPHROSIS [None]
  - OEDEMA PERIPHERAL [None]
  - PLATELET COUNT DECREASED [None]
